FAERS Safety Report 12191137 (Version 1)
Quarter: 2016Q1

REPORT INFORMATION
  Report Type: Spontaneous
  Country: US (occurrence: None)
  Receive Date: 20160317
  Receipt Date: 20160317
  Transmission Date: 20160526
  Serious: No
  Sender: FDA-Public Use
  Company Number: None

PATIENT
  Age: 38 Year
  Sex: Female

DRUGS (1)
  1. PRALUENT [Suspect]
     Active Substance: ALIROCUMAB
     Indication: TYPE IIA HYPERLIPIDAEMIA
     Dosage: 1 PEN (1ML) EVERY 14 DAYS SUBCUTANEOUS
     Route: 058
     Dates: start: 201501

REACTIONS (3)
  - Injection site reaction [None]
  - Injection site pruritus [None]
  - Injection site erythema [None]

NARRATIVE: CASE EVENT DATE: 20160316
